FAERS Safety Report 19264463 (Version 1)
Quarter: 2021Q2

REPORT INFORMATION
  Report Type: Spontaneous
  Country: US (occurrence: US)
  Receive Date: 20210517
  Receipt Date: 20210517
  Transmission Date: 20210717
  Serious: No
  Sender: FDA-Public Use
  Company Number: None

PATIENT
  Age: 78 Year
  Sex: Male
  Weight: 77.11 kg

DRUGS (1)
  1. RIVAROXABAN (RIVAROXABAN 20MG TAB) [Suspect]
     Active Substance: RIVAROXABAN
     Indication: ATRIAL FIBRILLATION
     Route: 048
     Dates: start: 20180503, end: 20210212

REACTIONS (10)
  - Hiatus hernia [None]
  - Diverticulum [None]
  - Presyncope [None]
  - Gastrointestinal erosion [None]
  - Gastric disorder [None]
  - Oesophageal infection [None]
  - Dyspnoea [None]
  - Microcytic anaemia [None]
  - Iron deficiency [None]
  - Large intestine polyp [None]

NARRATIVE: CASE EVENT DATE: 20210212
